FAERS Safety Report 4933337-8 (Version None)
Quarter: 2006Q1

REPORT INFORMATION
  Report Type: 
  Country: None (occurrence: None)
  Receive Date: 20060306
  Receipt Date: 20050929
  Transmission Date: 20060701
  Serious: Yes (Hospitalization)
  Sender: FDA-Public Use
  Company Number: US-MERCK-0510USA00643

PATIENT
  Age: 68 Year
  Sex: Male

DRUGS (3)
  1. VIOXX [Suspect]
     Indication: SHOULDER PAIN
     Route: 048
     Dates: start: 20020201, end: 20040901
  2. [THERAPY UNSPECIFIED] [Concomitant]
     Route: 065
  3. ZOCOR [Concomitant]
     Route: 065

REACTIONS (3)
  - CORONARY ARTERY DISEASE [None]
  - CORONARY ARTERY STENOSIS [None]
  - MYOCARDIAL INFARCTION [None]
